FAERS Safety Report 5370038-9 (Version None)
Quarter: 2007Q2

REPORT INFORMATION
  Report Type: 
  Country: None (occurrence: None)
  Receive Date: 20070626
  Receipt Date: 20070614
  Transmission Date: 20071010
  Serious: Yes (Hospitalization)
  Sender: FDA-Public Use
  Company Number: FR-JNJFOC-20061205204

PATIENT
  Age: 47 Year
  Sex: Female
  Weight: 45 kg

DRUGS (5)
  1. REMICADE [Suspect]
     Route: 042
  2. REMICADE [Suspect]
     Route: 042
  3. REMICADE [Suspect]
     Route: 042
  4. REMICADE [Suspect]
     Indication: SJOGREN'S SYNDROME
     Route: 042
  5. METHOTREXATE [Concomitant]
     Route: 048

REACTIONS (1)
  - CUTANEOUS TUBERCULOSIS [None]
